FAERS Safety Report 5876442-4 (Version None)
Quarter: 2008Q3

REPORT INFORMATION
  Report Type: 
  Country: None (occurrence: None)
  Receive Date: 20080910
  Receipt Date: 20080904
  Transmission Date: 20090109
  Serious: Yes (Hospitalization)
  Sender: FDA-Public Use
  Company Number: US-WATSON-2008-05332

PATIENT
  Age: 20 Year
  Sex: Male
  Weight: 75 kg

DRUGS (6)
  1. FENTANYL CITRATE [Suspect]
     Indication: SEDATION
     Dosage: 100 MG, UNKNOWN
     Route: 042
  2. LIDOCAINE 1% W/ EPINEPHRINE 1:200,000 [Suspect]
     Indication: ANAESTHESIA
     Dosage: 9 ML, TOTAL OF 2% LIDOCAINE WITH EPINEPHRINE
     Route: 042
  3. PROPOFOL [Suspect]
     Indication: SEDATION
     Dosage: 40 MG, UNKNOWN
     Route: 042
  4. CANNABIS [Suspect]
     Indication: DRUG USE FOR UNKNOWN INDICATION
     Dosage: UNK
  5. MIDAZOLAM HCL [Concomitant]
     Indication: SEDATION
     Dosage: 4 MG, UNK
     Route: 042
  6. DEXTROSE [Concomitant]
     Indication: DRUG USE FOR UNKNOWN INDICATION
     Dosage: 200 ML, OF 5% DEXTROSE

REACTIONS (2)
  - CONVERSION DISORDER [None]
  - PSYCHOTIC DISORDER [None]
